FAERS Safety Report 5551829-8 (Version None)
Quarter: 2007Q4

REPORT INFORMATION
  Report Type: 
  Country: None (occurrence: None)
  Receive Date: 20071212
  Receipt Date: 20071207
  Transmission Date: 20080405
  Serious: No
  Sender: FDA-Public Use
  Company Number: US-BOEHRINGER INGELHEIM PHARMACEUTICALS, INC.-2006-BP-07406BP

PATIENT
  Sex: Female

DRUGS (79)
  1. MIRAPEX [Suspect]
     Indication: RESTLESS LEGS SYNDROME
     Dates: start: 20000830, end: 20050809
  2. MAXZIDE [Concomitant]
     Route: 048
     Dates: start: 20040524
  3. ASTELIN [Concomitant]
     Indication: HYPERSENSITIVITY
     Route: 045
     Dates: start: 20050627
  4. ASTELIN [Concomitant]
     Indication: SINUSITIS
  5. XANAX [Concomitant]
     Indication: NERVOUSNESS
     Route: 048
     Dates: start: 19950201
  6. XANAX [Concomitant]
     Route: 048
  7. PREMARIN [Concomitant]
     Dates: start: 19990729
  8. NAPROXEN [Concomitant]
     Route: 048
     Dates: start: 20030122
  9. NEXIUM [Concomitant]
     Indication: GASTROOESOPHAGEAL REFLUX DISEASE
     Route: 048
     Dates: start: 20020422, end: 20040903
  10. NEXIUM [Concomitant]
     Route: 048
  11. RANITIDINE HCL [Concomitant]
     Indication: HIATUS HERNIA
     Dates: start: 19991214
  12. PAXIL CR [Concomitant]
     Indication: DEPRESSION
     Route: 048
     Dates: start: 20020601
  13. ZOLOFT [Concomitant]
     Indication: DEPRESSION
     Route: 048
     Dates: start: 20020128
  14. ZOLOFT [Concomitant]
     Dates: end: 20020601
  15. ZOLOFT [Concomitant]
     Dates: start: 20020628
  16. ZOLOFT [Concomitant]
     Dates: start: 20000830
  17. SINGULAIR [Concomitant]
     Route: 048
     Dates: start: 20021201
  18. ALLERGY INJECTIONS [Concomitant]
     Indication: ALLERGY PROPHYLAXIS
     Dates: start: 19981101
  19. PROVENTIL-HFA [Concomitant]
     Indication: PULMONARY CONGESTION
     Route: 055
     Dates: start: 20021201
  20. LEXAPRO [Concomitant]
     Indication: DEPRESSION
     Route: 048
     Dates: start: 20030301
  21. ALLEGRA [Concomitant]
     Indication: HYPERSENSITIVITY
     Route: 048
     Dates: start: 20010806
  22. EFFEXOR XR [Concomitant]
     Indication: DEPRESSION
     Route: 048
     Dates: start: 19981201, end: 20060626
  23. KLONOPIN [Concomitant]
     Route: 048
     Dates: start: 19991214
  24. RITALIN [Concomitant]
     Indication: FATIGUE
     Route: 048
     Dates: start: 20001012
  25. RITALIN [Concomitant]
     Indication: SOMNOLENCE
  26. FLUOXETINE [Concomitant]
     Route: 048
     Dates: start: 20060424
  27. FLUOXETINE [Concomitant]
     Route: 048
     Dates: start: 20060525
  28. VICODIN ESS [Concomitant]
     Route: 048
     Dates: start: 20020522
  29. ZANAFLEX [Concomitant]
     Indication: MUSCLE SPASMS
     Route: 048
     Dates: start: 20051222
  30. CYMBALTA [Concomitant]
     Route: 048
     Dates: start: 20060724
  31. BENICAR HCT [Concomitant]
     Dates: start: 20061207
  32. AMBIEN [Concomitant]
     Route: 048
     Dates: start: 20050707
  33. AMANTADINE HCL [Concomitant]
     Route: 048
     Dates: start: 20070209
  34. IBUPROFEN [Concomitant]
     Dates: start: 20000701
  35. CELEBREX [Concomitant]
     Indication: ARTHRITIS
     Dates: start: 19990601
  36. ABILIFY [Concomitant]
     Route: 048
     Dates: start: 20051114, end: 20060125
  37. ADVAIR DISKUS 100/50 [Concomitant]
     Indication: HYPERSENSITIVITY
     Dates: start: 20010806
  38. WELLBUTRIN XL [Concomitant]
     Indication: DEPRESSION
     Dates: start: 20040526, end: 20050309
  39. WELLBUTRIN XL [Concomitant]
     Indication: ANORGASMIA
  40. ASPIRIN [Concomitant]
     Indication: UNEVALUABLE EVENT
     Route: 048
     Dates: start: 20020201
  41. AVONEX [Concomitant]
     Indication: MULTIPLE SCLEROSIS
     Route: 030
     Dates: start: 20020401, end: 20060301
  42. DETROL LA [Concomitant]
     Dates: start: 20010504
  43. LUCIDEX [Concomitant]
     Dates: start: 20030331
  44. BENADRYL [Concomitant]
     Dates: start: 20020715
  45. PRILOSEC [Concomitant]
     Indication: GASTROOESOPHAGEAL REFLUX DISEASE
     Dates: start: 20040526
  46. LIDODERM [Concomitant]
     Indication: BACK PAIN
     Route: 061
     Dates: start: 20060222
  47. LOVENOX [Concomitant]
     Dates: start: 20061012
  48. BETASERON [Concomitant]
     Dates: start: 20061207
  49. SEREVENT [Concomitant]
     Route: 055
     Dates: start: 20010518
  50. MAXAIR [Concomitant]
     Dates: start: 20020610
  51. PANMIST LA [Concomitant]
     Route: 048
  52. EPIDURALS [Concomitant]
     Indication: BACK PAIN
  53. TRIGGER POINT INJECTIONS (BUPIVACAINE AND KENALOG) [Concomitant]
     Indication: BACK PAIN
     Dates: start: 20050309
  54. BACTRIM DS [Concomitant]
     Indication: SINUS DISORDER
     Route: 048
     Dates: start: 20050309
  55. ALPRAZOLAM [Concomitant]
  56. TRI-PAK [Concomitant]
     Indication: SINUSITIS
     Dates: start: 20050627
  57. TRI-PAK [Concomitant]
     Dates: start: 20041213
  58. AMOXICILLIN [Concomitant]
     Dates: start: 20030301
  59. ZITHROMAX [Concomitant]
     Dates: start: 20021210
  60. THERAPLEX [Concomitant]
  61. REQUIP [Concomitant]
     Indication: RESTLESS LEGS SYNDROME
  62. SINEQUAN [Concomitant]
  63. ZYRTEC [Concomitant]
  64. LODINE [Concomitant]
  65. STAY MOIST [Concomitant]
  66. VITAMINS [Concomitant]
  67. IRON [Concomitant]
  68. BELLERGAL S [Concomitant]
  69. SELDANE [Concomitant]
  70. MEDROL [Concomitant]
     Indication: RASH
     Dates: start: 20020823
  71. TESS PERLES [Concomitant]
     Indication: COUGH
     Dates: start: 20041213
  72. DIFLUCAN [Concomitant]
     Dates: start: 20040312
  73. DIFLUCAN [Concomitant]
     Dates: start: 20040625
  74. KEFLEX [Concomitant]
     Dates: start: 20040304
  75. KEFLEX [Concomitant]
     Dates: start: 20040625
  76. BLEPHAMIDE [Concomitant]
     Dates: start: 20040304
  77. DARVOCET [Concomitant]
  78. PREDNISONE TAPER [Concomitant]
  79. ZANTAC [Concomitant]

REACTIONS (6)
  - DEPRESSIVE SYMPTOM [None]
  - HYPERPHAGIA [None]
  - HYPERSEXUALITY [None]
  - OBSESSIVE-COMPULSIVE DISORDER [None]
  - PATHOLOGICAL GAMBLING [None]
  - WEIGHT INCREASED [None]
